FAERS Safety Report 5325092-7 (Version None)
Quarter: 2007Q2

REPORT INFORMATION
  Report Type: 
  Country: None (occurrence: None)
  Receive Date: 20070511
  Receipt Date: 20070511
  Transmission Date: 20071010
  Serious: Yes (Life-Threatening, Hospitalization)
  Sender: FDA-Public Use
  Company Number: None

PATIENT
  Age: 14 Year
  Sex: Female
  Weight: 60 kg

DRUGS (4)
  1. ACETADOTE [Suspect]
     Indication: OVERDOSE
     Dosage: 9,000 MG OVER 15 MINUTES IV
     Route: 042
     Dates: start: 20070508, end: 20070508
  2. D5-1/2NS [Concomitant]
  3. POTASSIUM CHLORIDE [Concomitant]
  4. BENADRYL [Concomitant]

REACTIONS (4)
  - ANGIOEDEMA [None]
  - INFUSION RELATED REACTION [None]
  - RASH [None]
  - WHEEZING [None]
